FAERS Safety Report 5012400-X (Version None)
Quarter: 2006Q2

REPORT INFORMATION
  Report Type: 
  Country: None (occurrence: None)
  Receive Date: 20060526
  Receipt Date: 20060516
  Transmission Date: 20061013
  Serious: Yes (Hospitalization, Other)
  Sender: FDA-Public Use
  Company Number: CA-ABBOTT-06P-028-0333491-00

PATIENT
  Sex: Female

DRUGS (2)
  1. BIAXIN XL [Suspect]
     Indication: SINUSITIS
     Dates: start: 20060401
  2. MOXIFLOXACIN HYDROCHLORIDE [Suspect]
     Indication: CHRONIC SINUSITIS
     Dates: start: 20060501

REACTIONS (2)
  - EOSINOPHILIC PNEUMONIA [None]
  - HEPATIC NECROSIS [None]
